FAERS Safety Report 13072930 (Version 4)
Quarter: 2017Q2

REPORT INFORMATION
  Report Type: Spontaneous
  Country: US (occurrence: US)
  Receive Date: 20161229
  Receipt Date: 20170512
  Transmission Date: 20170830
  Serious: No
  Sender: FDA-Public Use
  Company Number: US-PFIZER INC-2016590774

PATIENT
  Age: 44 Year
  Sex: Female

DRUGS (1)
  1. XALKORI [Suspect]
     Active Substance: CRIZOTINIB
     Indication: LUNG NEOPLASM MALIGNANT
     Dosage: 250 MG, 2X/DAY
     Route: 048
     Dates: start: 201608

REACTIONS (8)
  - Dyspnoea [Unknown]
  - Skin exfoliation [Unknown]
  - Eating disorder [Unknown]
  - Swelling [Unknown]
  - Nausea [Recovering/Resolving]
  - Headache [Unknown]
  - Diarrhoea [Unknown]
  - Neoplasm progression [Unknown]
